FAERS Safety Report 14795842 (Version 1)
Quarter: 2018Q2

REPORT INFORMATION
  Report Type: Report from Study
  Country: US (occurrence: US)
  Receive Date: 20180423
  Receipt Date: 20180423
  Transmission Date: 20180711
  Serious: No
  Sender: FDA-Public Use
  Company Number: US-AMGEN-USASL2018028623

PATIENT
  Age: 60 Year
  Sex: Female
  Weight: 59.73 kg

DRUGS (1)
  1. REPATHA [Suspect]
     Active Substance: EVOLOCUMAB
     Indication: PRODUCT USED FOR UNKNOWN INDICATION
     Dosage: 140 MG, Q2WK
     Route: 065
     Dates: start: 20180222

REACTIONS (3)
  - Injection site mass [Unknown]
  - Lack of injection site rotation [Recovered/Resolved]
  - Injection site bruising [Recovered/Resolved]
